FAERS Safety Report 5538215-1 (Version None)
Quarter: 2007Q4

REPORT INFORMATION
  Report Type: 
  Country: None (occurrence: None)
  Receive Date: 20071123
  Receipt Date: 20061218
  Transmission Date: 20080405
  Serious: Yes (Other)
  Sender: FDA-Public Use
  Company Number: US-JNJFOC-20061003514

PATIENT
  Age: 63 Year
  Sex: Male
  Weight: 65.7716 kg

DRUGS (7)
  1. LEVAQUIN [Suspect]
     Indication: BRONCHITIS
     Dosage: 500 MG, 1 IN 1 DAY, ORAL
     Route: 048
     Dates: start: 20060923, end: 20061002
  2. MEDROL [Concomitant]
  3. SINGULAIR [Concomitant]
  4. PAXIL [Concomitant]
  5. ADVAIR (SERETIDE MITE) AEROSOLS [Concomitant]
  6. ALBUTEROL (SALBUTAMOL) AEROSOLS [Concomitant]
  7. RANITIDINE (RANITIDINE) TABLETS [Concomitant]

REACTIONS (1)
  - TENDON RUPTURE [None]
